FAERS Safety Report 4719122-0 (Version None)
Quarter: 2005Q3

REPORT INFORMATION
  Report Type: 
  Country: None (occurrence: None)
  Receive Date: 20050720
  Receipt Date: 20050706
  Transmission Date: 20060218
  Serious: Yes (Other)
  Sender: FDA-Public Use
  Company Number: 2005098465

PATIENT
  Sex: Male

DRUGS (2)
  1. HYDROCORTISONE ACETATE (TABLETS) (HYDROCORTISONE) [Suspect]
     Indication: SECONDARY ADRENOCORTICAL INSUFFICIENCY
     Dosage: 25 MG
  2. FENTANYL [Suspect]
     Indication: SCIATICA
     Dosage: 200 MCG/HOUR, TRANSDERMAL
     Route: 062

REACTIONS (7)
  - ADRENOCORTICAL INSUFFICIENCY ACUTE [None]
  - BACK PAIN [None]
  - BLOOD PRESSURE DECREASED [None]
  - DRUG WITHDRAWAL SYNDROME [None]
  - HYPOPITUITARISM [None]
  - MIOSIS [None]
  - SOMNOLENCE [None]
